FAERS Safety Report 5408334-9 (Version None)
Quarter: 2007Q3

REPORT INFORMATION
  Report Type: 
  Country: None (occurrence: None)
  Receive Date: 20070803
  Receipt Date: 20070705
  Transmission Date: 20080115
  Serious: Yes (Hospitalization, Disabling, Other)
  Sender: FDA-Public Use
  Company Number: 2007RR-08499

PATIENT
  Age: 38 Year
  Sex: Female

DRUGS (15)
  1. IBUPROFEN [Suspect]
  2. CHAMPIX (VARENICLINE) [Suspect]
     Indication: SMOKING CESSATION THERAPY
     Dosage: 0.5 MG, BID, ORAL
     Route: 048
     Dates: start: 20070420
  3. ASPIRIN [Concomitant]
  4. ACTRAPID (INSULIN HUMAN) [Concomitant]
  5. IRBESARTAN [Concomitant]
  6. BUMETANIDE [Concomitant]
  7. DOSULEPIN (DOSULEPIN) [Concomitant]
  8. FLUCATISONE (FLUCATISONE) [Concomitant]
  9. FUROSEMIDE [Concomitant]
  10. GABAPENTIN [Concomitant]
  11. KETOCONAZOLE [Concomitant]
  12. LEVOTHYROXINE SODIUM [Concomitant]
  13. RAMIPRIL [Concomitant]
  14. SALMETEROL (SALBUTAMOL) [Concomitant]
  15. TRAMADOL HYDROCHLORIDE (TRAMADOL) [Concomitant]

REACTIONS (2)
  - INSOMNIA [None]
  - LIVER FUNCTION TEST ABNORMAL [None]
